FAERS Safety Report 10029208 (Version 1)
Quarter: 2014Q1

REPORT INFORMATION
  Report Type: Spontaneous
  Country: JP (occurrence: JP)
  Receive Date: 20140321
  Receipt Date: 20140321
  Transmission Date: 20141002
  Serious: Yes (Hospitalization, Other)
  Sender: FDA-Public Use
  Company Number: PHHY2014JP031297

PATIENT
  Age: 17 Year
  Sex: Female

DRUGS (13)
  1. TACROLIMUS [Suspect]
     Dosage: 1-3 MG/DAY
     Route: 048
  2. TACROLIMUS [Suspect]
     Dosage: 3 MG, UNK
  3. METHYLPREDNISOLONE [Suspect]
  4. PREDNISOLONE [Suspect]
     Dosage: 17-80 MG/DAY
     Route: 048
  5. PREDNISOLONE [Suspect]
     Dosage: 35 MG, PER DAY
     Route: 048
  6. PREDNISOLONE [Suspect]
     Dosage: 12.5-35 MG/DAY
     Route: 048
  7. PREDNISOLONE [Suspect]
     Dosage: 15 MG, UNK
  8. CICLOSPORIN [Suspect]
     Dosage: 150 MG, PER DAY
     Route: 048
  9. FILGRASTIM [Suspect]
     Dosage: 150-300 UG/DAY
     Route: 041
  10. ANTIHYPERTENSIVES [Concomitant]
  11. ANTICOAGULANTS [Concomitant]
  12. ANTIBIOTICS [Concomitant]
  13. ANTIMYCOTIC [Concomitant]

REACTIONS (4)
  - Neutropenia [Recovering/Resolving]
  - Systemic lupus erythematosus [Recovering/Resolving]
  - Erythema [Recovering/Resolving]
  - Rash macular [Recovering/Resolving]
